FAERS Safety Report 19525066 (Version 11)
Quarter: 2022Q2

REPORT INFORMATION
  Report Type: Report from Study
  Country: CN (occurrence: None)
  Receive Date: 20210713
  Receipt Date: 20220525
  Transmission Date: 20220721
  Serious: Yes (Hospitalization)
  Sender: FDA-Public Use
  Company Number: CN-ROCHE-2851757

PATIENT
  Age: 57 Year
  Sex: Male
  Weight: 69 kg

DRUGS (16)
  1. ATEZOLIZUMAB [Suspect]
     Active Substance: ATEZOLIZUMAB
     Indication: Hepatocellular carcinoma
     Dosage: ON DAY 1 OF EACH 21-DAY CYCLE.?ON 03/JUN/2021, HE RECEIVED MOST RECENT DOSE OF ATEZOLZIUMAB (1200 MG
     Route: 041
     Dates: start: 20210603
  2. BEVACIZUMAB [Suspect]
     Active Substance: BEVACIZUMAB
     Indication: Hepatocellular carcinoma
     Dosage: ON DAY 1 OF EACH 21-DAY CYCLE?ON 03/JUN/2021, HE RECEIVED MOST RECENT DOSE OF BEVACIZUMAB (1035 MG)
     Route: 042
     Dates: start: 20210603
  3. DOLASETRON [Concomitant]
     Active Substance: DOLASETRON
     Indication: Nausea
     Dates: start: 20210616, end: 20210628
  4. INSULIN NOS [Concomitant]
     Active Substance: INSULIN NOS
     Dates: start: 20210616, end: 20210619
  5. AMBROXOL [Concomitant]
     Active Substance: AMBROXOL
     Dates: start: 20210616, end: 20210701
  6. DOXOFYLLINE [Concomitant]
     Active Substance: DOXOFYLLINE
     Dates: start: 20210616, end: 20210701
  7. COBAMAMIDE [Concomitant]
     Active Substance: COBAMAMIDE
     Dates: start: 20210616, end: 20210701
  8. FUROSEMIDE [Concomitant]
     Active Substance: FUROSEMIDE
     Indication: Polyuria
     Dates: start: 20210617, end: 20210623
  9. GLUTAMINE [Concomitant]
     Active Substance: GLUTAMINE
     Dates: start: 20210616, end: 20210619
  10. PENTAZOCINE [Concomitant]
     Active Substance: PENTAZOCINE
     Indication: Analgesic therapy
     Dates: start: 20210616, end: 20210617
  11. SODIUM CHLORIDE [Concomitant]
     Active Substance: SODIUM CHLORIDE
     Dates: start: 20210616, end: 20210630
  12. SODIUM GLYCEROPHOSPHATE [Concomitant]
     Active Substance: SODIUM GLYCEROPHOSPHATE
     Dates: start: 20210617, end: 20210617
  13. CALCIUM GLUCONATE [Concomitant]
     Active Substance: CALCIUM GLUCONATE
     Dates: start: 20210616, end: 20210620
  14. FIBRINOGEN HUMAN [Concomitant]
     Active Substance: FIBRINOGEN HUMAN
     Dates: start: 20210621, end: 20210629
  15. ALBUMIN HUMAN [Concomitant]
     Active Substance: ALBUMIN HUMAN
     Dates: start: 20210617, end: 20210623
  16. POTASSIUM CHLORIDE [Concomitant]
     Active Substance: POTASSIUM CHLORIDE
     Dates: start: 20210616, end: 20210618

REACTIONS (1)
  - Immune-mediated encephalitis [Recovered/Resolved]

NARRATIVE: CASE EVENT DATE: 20210610
